FAERS Safety Report 9619761 (Version 1)
Quarter: 2013Q4

REPORT INFORMATION
  Report Type: Spontaneous
  Country: US (occurrence: US)
  Receive Date: 20131014
  Receipt Date: 20131014
  Transmission Date: 20140711
  Serious: Yes (Hospitalization)
  Sender: FDA-Public Use
  Company Number: US-PERRIGO-13US010328

PATIENT
  Age: 27 Year
  Sex: Male

DRUGS (1)
  1. NAPROXEN SODIUM 220 MG 368 [Suspect]
     Indication: HEADACHE
     Dosage: 440 MG, SINGLE
     Route: 048

REACTIONS (1)
  - Status asthmaticus [Recovered/Resolved]
